FAERS Safety Report 7209293-9 (Version None)
Quarter: 2011Q1

REPORT INFORMATION
  Report Type: 
  Country: None (occurrence: None)
  Receive Date: 20110104
  Receipt Date: 20101227
  Transmission Date: 20110831
  Serious: Yes (Hospitalization)
  Sender: FDA-Public Use
  Company Number: B0691929A

PATIENT
  Sex: Female
  Weight: 11 kg

DRUGS (1)
  1. AUGMENTIN '125' [Suspect]
     Indication: BRONCHITIS
     Dosage: 2.5ML TWICE PER DAY
     Route: 048
     Dates: start: 20101109, end: 20101115

REACTIONS (1)
  - RASH MACULO-PAPULAR [None]
